FAERS Safety Report 6066002-7 (Version None)
Quarter: 2009Q1

REPORT INFORMATION
  Report Type: 
  Country: None (occurrence: None)
  Receive Date: 20090205
  Receipt Date: 20090126
  Transmission Date: 20090719
  Serious: Yes (Hospitalization)
  Sender: FDA-Public Use
  Company Number: CZ-AMGEN-US330977

PATIENT
  Age: 45 Year
  Sex: Male

DRUGS (1)
  1. ENBREL [Suspect]
     Indication: ANKYLOSING SPONDYLITIS
     Dosage: UNSPECIFIED DOSE DISCONTINUED FOR 8 WEEKS
     Route: 058
     Dates: end: 20081007

REACTIONS (4)
  - HAEMOPHILUS INFECTION [None]
  - PNEUMONIA CHLAMYDIAL [None]
  - PNEUMONIA PRIMARY ATYPICAL [None]
  - RESPIRATORY FAILURE [None]
